FAERS Safety Report 25392812 (Version 1)
Quarter: 2025Q2

REPORT INFORMATION
  Report Type: Spontaneous
  Country: NO (occurrence: NO)
  Receive Date: 20250603
  Receipt Date: 20250603
  Transmission Date: 20250716
  Serious: Yes (Other)
  Sender: ALEXION PHARMACEUTICALS
  Company Number: NO-AstraZeneca-CH-00876557A

PATIENT
  Age: 51 Year

DRUGS (2)
  1. TRUQAP [Suspect]
     Active Substance: CAPIVASERTIB
     Indication: Product used for unknown indication
  2. PACLITAXEL [Concomitant]
     Active Substance: PACLITAXEL
     Route: 065

REACTIONS (6)
  - Leukopenia [Unknown]
  - Thrombocytopenia [Unknown]
  - Coronary artery dissection [Unknown]
  - Cerebral venous sinus thrombosis [Unknown]
  - Acute promyelocytic leukaemia [Unknown]
  - Anaemia [Unknown]
